FAERS Safety Report 8318942-3 (Version None)
Quarter: 2012Q2

REPORT INFORMATION
  Report Type: 
  Country: None (occurrence: None)
  Receive Date: 20120427
  Receipt Date: 20120419
  Transmission Date: 20120825
  Serious: Yes (Hospitalization)
  Sender: FDA-Public Use
  Company Number: FI-JNJFOC-20120411786

PATIENT
  Sex: Female

DRUGS (12)
  1. TAMSULOSIN HCL [Concomitant]
     Route: 048
  2. CELEBREX [Concomitant]
     Route: 048
  3. TRIPTYL [Concomitant]
     Route: 048
  4. POTASSIUM CHLORIDE [Concomitant]
     Route: 048
  5. PANTOPRAZOLE [Concomitant]
     Route: 048
  6. RIVATRIL [Concomitant]
     Route: 048
  7. LEVOMEPROMAZINE MALEATE [Concomitant]
     Route: 048
  8. XARELTO [Suspect]
     Indication: KNEE ARTHROPLASTY
     Route: 048
     Dates: start: 20120410, end: 20120414
  9. BISOPROLOL FUMARATE [Concomitant]
     Indication: CARDIAC FAILURE CONGESTIVE
     Route: 048
  10. CYMBALTA [Concomitant]
     Route: 048
  11. CLOZAPINE [Concomitant]
     Route: 048
  12. PROTAPHANE [Concomitant]
     Dosage: 100 IU/ML
     Route: 058

REACTIONS (5)
  - DYSPNOEA [None]
  - HAEMOGLOBIN DECREASED [None]
  - HYPERKALAEMIA [None]
  - IMPAIRED GASTRIC EMPTYING [None]
  - GASTRIC HAEMORRHAGE [None]
